FAERS Safety Report 17430032 (Version 2)
Quarter: 2020Q1

REPORT INFORMATION
  Report Type: Spontaneous
  Country: US (occurrence: US)
  Receive Date: 20200218
  Receipt Date: 20200303
  Transmission Date: 20200409
  Serious: No
  Sender: FDA-Public Use
  Company Number: US-PFIZER INC-2020066768

PATIENT
  Age: 82 Year
  Sex: Female

DRUGS (3)
  1. ADVIL PM [Suspect]
     Active Substance: DIPHENHYDRAMINE CITRATE\IBUPROFEN
     Indication: SLEEP DISORDER
     Dosage: 1 DF, DAILY
  2. LOVASTATIN. [Concomitant]
     Active Substance: LOVASTATIN
     Dosage: 80 MG, 1X/DAY (40 MG 2 WITH DINNER)
  3. MELATONIN [Concomitant]
     Active Substance: MELATONIN
     Dosage: 1 DF, 1X/DAY [ONE MELATONIN AT NIGHT]

REACTIONS (1)
  - Drug ineffective [Recovered/Resolved]
